FAERS Safety Report 5444968-3 (Version None)
Quarter: 2007Q3

REPORT INFORMATION
  Report Type: 
  Country: None (occurrence: None)
  Receive Date: 20070906
  Receipt Date: 20070904
  Transmission Date: 20080115
  Serious: Yes (Death, Hospitalization)
  Sender: FDA-Public Use
  Company Number: PHEH2007US11771

PATIENT
  Age: 68 Year
  Sex: Male

DRUGS (1)
  1. EXJADE [Suspect]
     Indication: MYELODYSPLASTIC SYNDROME
     Dosage: 1875 MG, QD
     Route: 048
     Dates: start: 20070626, end: 20070831

REACTIONS (3)
  - DEATH [None]
  - JAUNDICE [None]
  - LIVER DISORDER [None]
